FAERS Safety Report 5152873-5 (Version None)
Quarter: 2006Q4

REPORT INFORMATION
  Report Type: 
  Country: None (occurrence: None)
  Receive Date: 20061117
  Receipt Date: 20060912
  Transmission Date: 20070319
  Serious: Yes (Disabling, Other)
  Sender: FDA-Public Use
  Company Number: PHEH2006US11716

PATIENT
  Age: 69 Year
  Sex: Male
  Weight: 66.213 kg

DRUGS (6)
  1. EXJADE [Suspect]
     Indication: SERUM FERRITIN INCREASED
     Dosage: 1500 MG, QD
     Route: 048
     Dates: start: 20060501, end: 20060822
  2. ATENOLOL [Concomitant]
     Indication: CORONARY ARTERY DISEASE
     Dosage: 50 MG, QD
     Route: 048
  3. PAROXETINE HCL [Concomitant]
     Indication: DEPRESSION
     Dosage: 20 MG, QHS
  4. LORAZEPAM [Concomitant]
     Indication: ANXIETY
     Dosage: 1 MG, QHS
  5. ISOSORBIDE [Concomitant]
     Indication: CORONARY ARTERY DISEASE
     Dosage: 30 MG, QD
  6. ACYCLOVIR [Concomitant]
     Indication: HERPES SIMPLEX
     Dosage: 800MG 5 TIMES/DAY PRN
     Route: 048
     Dates: start: 20010101

REACTIONS (8)
  - AUTOIMMUNE DISORDER [None]
  - DIARRHOEA [None]
  - GLOSSODYNIA [None]
  - MUCOSAL INFLAMMATION [None]
  - NASOPHARYNGEAL DISORDER [None]
  - ORAL SOFT TISSUE DISORDER [None]
  - SWOLLEN TONGUE [None]
  - TONGUE ULCERATION [None]
